FAERS Safety Report 24276247 (Version 1)
Quarter: 2024Q3

REPORT INFORMATION
  Report Type: Spontaneous
  Country: IN (occurrence: IN)
  Receive Date: 20240903
  Receipt Date: 20240903
  Transmission Date: 20241017
  Serious: Yes (Other)
  Sender: NOVITIUM PHARMA
  Company Number: IN-NOVITIUMPHARMA-2024INNVP01745

PATIENT
  Age: 50 Year
  Sex: Female

DRUGS (3)
  1. DAPSONE [Suspect]
     Active Substance: DAPSONE
     Indication: Tuberculoid leprosy
  2. RIFAMPIN [Concomitant]
     Active Substance: RIFAMPIN
     Indication: Tuberculoid leprosy
  3. CLOFAZIMINE [Concomitant]
     Active Substance: CLOFAZIMINE
     Indication: Tuberculoid leprosy

REACTIONS (1)
  - Autoimmune hepatitis [Unknown]
